FAERS Safety Report 4592497-1 (Version None)
Quarter: 2005Q1

REPORT INFORMATION
  Report Type: 
  Country: None (occurrence: None)
  Receive Date: 20050222
  Receipt Date: 20050210
  Transmission Date: 20050727
  Serious: Yes (Other)
  Sender: FDA-Public Use
  Company Number: 2005028011

PATIENT
  Sex: Female

DRUGS (5)
  1. PROVERA [Suspect]
     Indication: HORMONE REPLACEMENT THERAPY
     Dosage: ORAL
     Route: 048
     Dates: start: 19810101, end: 20000101
  2. CONJUGATED ESTROGENS [Suspect]
     Indication: HORMONE REPLACEMENT THERAPY
     Dates: start: 19810101, end: 20000101
  3. PROGESTERONE [Suspect]
     Indication: HORMONE REPLACEMENT THERAPY
     Dates: start: 19810101, end: 20000101
  4. ESTROGEN NOS (ESTROGEN NOS) [Suspect]
     Indication: HORMONE REPLACEMENT THERAPY
     Dates: start: 19810101, end: 20000101
  5. ESTROGENS ESTERIFIED (ESTROGENS ESTERIFIED) [Suspect]
     Indication: HORMONE REPLACEMENT THERAPY
     Dates: start: 19810101, end: 20000101

REACTIONS (1)
  - BREAST CANCER FEMALE [None]
